FAERS Safety Report 8404834-8 (Version None)
Quarter: 2012Q2

REPORT INFORMATION
  Report Type: 
  Country: None (occurrence: None)
  Receive Date: 20120601
  Receipt Date: 20120523
  Transmission Date: 20120825
  Serious: Yes (Hospitalization)
  Sender: FDA-Public Use
  Company Number: US-RB-040814-12

PATIENT
  Sex: Female

DRUGS (2)
  1. SUBOXONE [Suspect]
     Indication: PRODUCT USED FOR UNKNOWN INDICATION
     Dosage: DOSING DETAILS NOT PROVIDED
     Route: 065
     Dates: start: 20110101
  2. SUBOXONE [Suspect]
     Indication: PRODUCT USED FOR UNKNOWN INDICATION
     Dosage: DOSING DETAILS NOT PROVIDED
     Route: 065
     Dates: start: 20070101

REACTIONS (8)
  - PARAESTHESIA [None]
  - HYPERHIDROSIS [None]
  - SERUM FERRITIN DECREASED [None]
  - FATIGUE [None]
  - SMALL INTESTINAL HAEMORRHAGE [None]
  - DENTAL CARIES [None]
  - GAIT DISTURBANCE [None]
  - IRON DEFICIENCY [None]
